FAERS Safety Report 7380122-6 (Version None)
Quarter: 2011Q1

REPORT INFORMATION
  Report Type: 
  Country: None (occurrence: None)
  Receive Date: 20110329
  Receipt Date: 20100630
  Transmission Date: 20110831
  Serious: No
  Sender: FDA-Public Use
  Company Number: US-MYLANLABS-2010S1009501

PATIENT
  Age: 62 Year
  Sex: Female
  Weight: 53.52 kg

DRUGS (5)
  1. CELEXA [Concomitant]
     Indication: ANXIETY
     Route: 048
  2. ESTRADIOL [Suspect]
     Indication: OSTEOPOROSIS
     Dosage: CHANGED QW
     Route: 062
     Dates: start: 20091001
  3. SYNTHROID [Concomitant]
     Indication: HYPOTHYROIDISM
     Route: 048
  4. NORVASC [Concomitant]
     Indication: BLOOD PRESSURE INCREASED
     Route: 048
  5. CORTEF /00028601/ [Concomitant]
     Indication: ADDISON'S DISEASE
     Route: 048

REACTIONS (1)
  - APPLICATION SITE RASH [None]
